FAERS Safety Report 7437007-6 (Version None)
Quarter: 2011Q2

REPORT INFORMATION
  Report Type: 
  Country: None (occurrence: None)
  Receive Date: 20110426
  Receipt Date: 20110419
  Transmission Date: 20111010
  Serious: Yes (Death)
  Sender: FDA-Public Use
  Company Number: CH-SANOFI-AVENTIS-2011SA024289

PATIENT
  Age: 51 Year
  Sex: Male
  Weight: 80 kg

DRUGS (1)
  1. CLEXANE [Suspect]
     Indication: THROMBOSIS PROPHYLAXIS
     Route: 058
     Dates: start: 20110109, end: 20110316

REACTIONS (2)
  - PULMONARY EMBOLISM [None]
  - DRUG INEFFECTIVE [None]
